FAERS Safety Report 5252572-5 (Version None)
Quarter: 2007Q1

REPORT INFORMATION
  Report Type: 
  Country: None (occurrence: None)
  Receive Date: 20070301
  Receipt Date: 20070221
  Transmission Date: 20070707
  Serious: Yes (Hospitalization)
  Sender: FDA-Public Use
  Company Number: US-AMGEN-US212205

PATIENT
  Sex: Male
  Weight: 107.5 kg

DRUGS (14)
  1. EPOGEN [Suspect]
     Indication: DIALYSIS
     Route: 065
     Dates: start: 20060701
  2. NOVOLOG [Concomitant]
  3. NOVOLIN 70/30 [Concomitant]
  4. AMBIEN [Concomitant]
  5. REGLAN [Concomitant]
  6. CYMBALTA [Concomitant]
  7. PLAVIX [Concomitant]
  8. METOPROLOL SUCCINATE [Concomitant]
  9. LEVOTHYROXINE SODIUM [Concomitant]
  10. TESTOSTERONE [Concomitant]
  11. RENAGEL [Concomitant]
  12. VICODIN [Concomitant]
  13. MIDRIN [Concomitant]
  14. PHOSLO [Concomitant]

REACTIONS (4)
  - CAROTID ARTERY OCCLUSION [None]
  - CAROTID ARTERY STENOSIS [None]
  - MUSCULAR WEAKNESS [None]
  - THERAPEUTIC RESPONSE DECREASED [None]
